FAERS Safety Report 21531415 (Version 1)
Quarter: 2022Q4

REPORT INFORMATION
  Report Type: Report from Study
  Country: US (occurrence: US)
  Receive Date: 20221031
  Receipt Date: 20221031
  Transmission Date: 20230112
  Serious: Yes (Other)
  Sender: FDA-Public Use
  Company Number: US-GW PHARMA-2022-US-033825

PATIENT
  Age: 58 Year
  Sex: Male
  Weight: 111.11 kg

DRUGS (1)
  1. EPIDIOLEX [Suspect]
     Active Substance: CANNABIDIOL
     Indication: Lennox-Gastaut syndrome
     Dosage: 13.6 MILLILITER, BID
     Route: 048
     Dates: start: 201911

REACTIONS (1)
  - Emergency care [Recovered/Resolved]

NARRATIVE: CASE EVENT DATE: 20221022
